FAERS Safety Report 23483272 (Version 3)
Quarter: 2024Q2

REPORT INFORMATION
  Report Type: Report from Study
  Country: DE (occurrence: DE)
  Receive Date: 20240205
  Receipt Date: 20240415
  Transmission Date: 20240716
  Serious: Yes (Hospitalization, Disabling, Other)
  Sender: FDA-Public Use
  Company Number: DE-KYOWAKIRIN-2024KK001777

PATIENT

DRUGS (23)
  1. MOGAMULIZUMAB [Suspect]
     Active Substance: MOGAMULIZUMAB
     Indication: Cutaneous T-cell lymphoma stage III
     Dosage: 1MG/KG (CYCLE 6 DAY 1)
     Route: 065
     Dates: start: 20240201
  2. MOGAMULIZUMAB [Suspect]
     Active Substance: MOGAMULIZUMAB
     Dosage: 67.5 MG (1MG/KG CYCLE 1 DAY 1)
     Route: 065
     Dates: start: 20230914
  3. MOGAMULIZUMAB [Suspect]
     Active Substance: MOGAMULIZUMAB
     Dosage: 67.5 MG (1MG/KG CYCLE 1 DAY 8)
     Route: 065
     Dates: start: 20230921
  4. MOGAMULIZUMAB [Suspect]
     Active Substance: MOGAMULIZUMAB
     Dosage: 67.5 MG (1MG/KG CYCLE 1 DAY 15)
     Route: 065
     Dates: start: 20230928
  5. MOGAMULIZUMAB [Suspect]
     Active Substance: MOGAMULIZUMAB
     Dosage: 67.5 MG (1MG/KG CYCLE 1 DAY 22)
     Route: 065
     Dates: start: 20231005
  6. MOGAMULIZUMAB [Suspect]
     Active Substance: MOGAMULIZUMAB
     Dosage: 67.5 MG (1MG/KG CYCLE 2 DAY 1)
     Route: 065
     Dates: start: 20231012
  7. MOGAMULIZUMAB [Suspect]
     Active Substance: MOGAMULIZUMAB
     Dosage: 67.5 MG (1MG/KG CYCLE 2 DAY 15)
     Route: 065
     Dates: start: 20231026
  8. MOGAMULIZUMAB [Suspect]
     Active Substance: MOGAMULIZUMAB
     Dosage: 67.5 MG (1MG/KG CYCLE 3 DAY 1)
     Route: 065
     Dates: start: 20231109
  9. MOGAMULIZUMAB [Suspect]
     Active Substance: MOGAMULIZUMAB
     Dosage: 67.5 MG (1MG/KG CYCLE 3 DAY 15)
     Route: 065
     Dates: start: 20231123
  10. MOGAMULIZUMAB [Suspect]
     Active Substance: MOGAMULIZUMAB
     Dosage: 67 MG (1MG/KG CYCLE 4 DAY 1)
     Route: 065
     Dates: start: 20231207
  11. MOGAMULIZUMAB [Suspect]
     Active Substance: MOGAMULIZUMAB
     Dosage: 1 MG/KG (CYCLE 4 DAY 15)
     Route: 065
     Dates: start: 20231221
  12. MOGAMULIZUMAB [Suspect]
     Active Substance: MOGAMULIZUMAB
     Dosage: 1MG/KG (CYCLE 5 DAY 1)
     Route: 065
     Dates: start: 20240104
  13. MOGAMULIZUMAB [Suspect]
     Active Substance: MOGAMULIZUMAB
     Dosage: 1MG/KG (CYCLE 5 DAY 15)
     Route: 065
     Dates: start: 20240118
  14. MOGAMULIZUMAB [Suspect]
     Active Substance: MOGAMULIZUMAB
     Dosage: 1 MG/KG (CYCLE 6 DAY 15)
     Route: 065
     Dates: start: 20240229
  15. MOGAMULIZUMAB [Suspect]
     Active Substance: MOGAMULIZUMAB
     Dosage: UNK, (CYCLE 7 DAY 1)
     Route: 065
     Dates: start: 20240314
  16. MOGAMULIZUMAB [Suspect]
     Active Substance: MOGAMULIZUMAB
     Dosage: UNK, (CYCLE 7 DAY 15)
     Route: 065
     Dates: start: 20240328
  17. SPIRONOLACTONE [Concomitant]
     Active Substance: SPIRONOLACTONE
     Indication: Product used for unknown indication
     Dosage: 25 MG, QD
     Route: 065
  18. AMIODARONE HYDROCHLORIDE [Concomitant]
     Active Substance: AMIODARONE HYDROCHLORIDE
     Indication: Product used for unknown indication
     Dosage: 200 MG, QD
     Route: 065
  19. DAPAGLIFLOZIN [Concomitant]
     Active Substance: DAPAGLIFLOZIN
     Indication: Product used for unknown indication
     Dosage: 12.3 MG, QD
     Route: 065
  20. APIXABAN [Concomitant]
     Active Substance: APIXABAN
     Indication: Product used for unknown indication
     Dosage: 5 MG, BID
     Route: 065
  21. SACUBITRIL [Concomitant]
     Active Substance: SACUBITRIL
     Indication: Product used for unknown indication
     Dosage: 57 MG, TID
     Route: 065
  22. ATORVASTATIN [Concomitant]
     Active Substance: ATORVASTATIN
     Indication: Product used for unknown indication
     Dosage: 21.7 MG, QD
     Route: 065
  23. MIRTAZAPINE [Concomitant]
     Active Substance: MIRTAZAPINE
     Indication: Product used for unknown indication
     Dosage: 15 MG, QD
     Route: 065
     Dates: start: 20230907

REACTIONS (3)
  - Body temperature increased [Not Recovered/Not Resolved]
  - Somnolence [Not Recovered/Not Resolved]
  - Disorientation [Not Recovered/Not Resolved]

NARRATIVE: CASE EVENT DATE: 20240201
